FAERS Safety Report 4512595-8 (Version None)
Quarter: 2004Q4

REPORT INFORMATION
  Report Type: 
  Country: None (occurrence: None)
  Receive Date: 20041129
  Receipt Date: 20041119
  Transmission Date: 20050328
  Serious: Yes (Hospitalization, Disabling)
  Sender: FDA-Public Use
  Company Number: CA-MERCK-0411CAN00177

PATIENT

DRUGS (1)
  1. VIOXX [Suspect]
     Indication: ARTHRALGIA
     Route: 048
     Dates: start: 20020702, end: 20020701

REACTIONS (12)
  - ABNORMAL FAECES [None]
  - BLADDER DISORDER [None]
  - CONSTIPATION [None]
  - EMOTIONAL DISTRESS [None]
  - FAECES DISCOLOURED [None]
  - FATIGUE [None]
  - HYPERSENSITIVITY [None]
  - INFLAMMATION [None]
  - MENTAL DISORDER [None]
  - PHOTOSENSITIVITY REACTION [None]
  - SLEEP DISORDER [None]
  - SPINAL CORD DISORDER [None]
